FAERS Safety Report 18997998 (Version 1)
Quarter: 2021Q1

REPORT INFORMATION
  Report Type: Report from Study
  Country: US (occurrence: US)
  Receive Date: 20210311
  Receipt Date: 20210311
  Transmission Date: 20210420
  Serious: No
  Sender: FDA-Public Use
  Company Number: NVSC2021US048274

PATIENT
  Sex: Female

DRUGS (1)
  1. GLATOPA [Suspect]
     Active Substance: GLATIRAMER ACETATE
     Indication: MULTIPLE SCLEROSIS
     Dosage: 20 MG
     Route: 058

REACTIONS (5)
  - Neck pain [Unknown]
  - Back pain [Unknown]
  - Chills [Unknown]
  - Tremor [Unknown]
  - Injection site reaction [Unknown]
